FAERS Safety Report 21696319 (Version 1)
Quarter: 2022Q4

REPORT INFORMATION
  Report Type: Spontaneous
  Country: DE (occurrence: DE)
  Receive Date: 20221207
  Receipt Date: 20221207
  Transmission Date: 20230113
  Serious: Yes (Other)
  Sender: FDA-Public Use
  Company Number: DE-TAKEDA-2022TUS092832

PATIENT
  Age: 65 Year
  Sex: Female

DRUGS (2)
  1. ENTYVIO [Suspect]
     Active Substance: VEDOLIZUMAB
     Indication: Colitis ulcerative
     Dosage: 300 MILLIGRAM
     Route: 042
  2. CORTISONE [Concomitant]
     Active Substance: CORTISONE
     Dosage: 5 MILLIGRAM

REACTIONS (9)
  - Haemorrhage [Unknown]
  - Blepharospasm [Unknown]
  - Abdominal pain upper [Recovered/Resolved]
  - Faecal volume decreased [Recovered/Resolved]
  - Musculoskeletal stiffness [Unknown]
  - Muscle spasms [Unknown]
  - Paraesthesia [Unknown]
  - Arthralgia [Unknown]
  - Headache [Unknown]
